FAERS Safety Report 7814397-3 (Version None)
Quarter: 2011Q4

REPORT INFORMATION
  Report Type: 
  Country: None (occurrence: None)
  Receive Date: 20111014
  Receipt Date: 20110930
  Transmission Date: 20120403
  Serious: Yes (Hospitalization, Other)
  Sender: FDA-Public Use
  Company Number: PHHY2011JP87380

PATIENT
  Sex: Male

DRUGS (3)
  1. VALSARTAN [Suspect]
     Indication: HYPERTENSION
     Dosage: 40 MG, QD
     Route: 048
     Dates: start: 20080225, end: 20090512
  2. INDAPAMIDE [Suspect]
     Indication: HYPERTENSION
     Dosage: 1 MG, UNK
     Route: 048
     Dates: start: 20091109, end: 20100118
  3. VALSARTAN [Suspect]
     Dosage: 80 MG, QD
     Route: 048
     Dates: start: 20090513, end: 20100120

REACTIONS (5)
  - HAEMOPTYSIS [None]
  - LYMPHOCYTE STIMULATION TEST POSITIVE [None]
  - BLOOD PRESSURE DIASTOLIC DECREASED [None]
  - INTERSTITIAL LUNG DISEASE [None]
  - DYSPNOEA [None]
